FAERS Safety Report 4642374-2 (Version None)
Quarter: 2005Q2

REPORT INFORMATION
  Report Type: 
  Country: None (occurrence: None)
  Receive Date: 20050422
  Receipt Date: 20050419
  Transmission Date: 20051028
  Serious: Yes (Other)
  Sender: FDA-Public Use
  Company Number: CA-GLAXOSMITHKLINE-A0555084A

PATIENT
  Age: 8 Year
  Sex: Male

DRUGS (2)
  1. DEXEDRINE [Suspect]
     Indication: DRUG USE FOR UNKNOWN INDICATION
     Dosage: 10MG TWICE PER DAY
     Route: 048
     Dates: start: 20041101
  2. METHYLPHENIDATE HCL [Concomitant]

REACTIONS (1)
  - HALLUCINATION, VISUAL [None]
